FAERS Safety Report 7949014-5 (Version None)
Quarter: 2011Q4

REPORT INFORMATION
  Report Type: 
  Country: None (occurrence: None)
  Receive Date: 20111130
  Receipt Date: 20111118
  Transmission Date: 20120403
  Serious: Yes (Hospitalization)
  Sender: FDA-Public Use
  Company Number: US-ELI_LILLY_AND_COMPANY-US201111007536

PATIENT
  Sex: Female

DRUGS (17)
  1. PREDNISONE TAB [Concomitant]
  2. ADVAIR DISKUS 100/50 [Concomitant]
  3. MS CONTIN [Concomitant]
  4. SERTRALINE HYDROCHLORIDE [Concomitant]
  5. FORTEO [Suspect]
     Indication: OSTEOPOROSIS
     Dosage: 20 UG, QD
     Route: 065
     Dates: start: 20111110
  6. ASPIRIN [Concomitant]
  7. MUCINEX [Concomitant]
  8. ATIVAN [Concomitant]
  9. MIRALAX [Concomitant]
  10. FLOVENT [Concomitant]
  11. BYSTOLIC [Concomitant]
  12. IRON [Concomitant]
  13. XANAX [Concomitant]
  14. LASIX [Concomitant]
  15. DUONEB [Concomitant]
  16. CALCIUM [Concomitant]
  17. PROAIR HFA [Concomitant]

REACTIONS (5)
  - INFLUENZA [None]
  - ABDOMINAL DISCOMFORT [None]
  - FATIGUE [None]
  - MALAISE [None]
  - CHRONIC OBSTRUCTIVE PULMONARY DISEASE [None]
